FAERS Safety Report 4944502-8 (Version None)
Quarter: 2006Q1

REPORT INFORMATION
  Report Type: 
  Country: None (occurrence: None)
  Receive Date: 20060315
  Receipt Date: 20060216
  Transmission Date: 20060701
  Serious: Yes (Hospitalization)
  Sender: FDA-Public Use
  Company Number: JP-SANOFI-SYNTHELABO-A01200601266

PATIENT
  Age: 944 Month
  Sex: Female
  Weight: 48 kg

DRUGS (10)
  1. MYSLEE [Suspect]
     Indication: INSOMNIA
     Dosage: 5 MG
     Route: 048
     Dates: start: 20051206, end: 20060202
  2. MYSLEE [Suspect]
     Dosage: 5 MG
     Route: 048
     Dates: start: 20060204, end: 20060205
  3. DEPAS [Suspect]
     Indication: INSOMNIA
     Dosage: 0.25 MG
     Route: 048
     Dates: start: 20050916, end: 20060207
  4. SUNRYTHM [Concomitant]
     Indication: ARRHYTHMIA
     Dosage: 100 MG
     Route: 048
     Dates: start: 20040120
  5. DETANTOL R [Concomitant]
     Indication: HYPERTENSION
     Dosage: 3 MG
     Route: 048
     Dates: start: 20030924
  6. KERLONG [Concomitant]
     Indication: HYPERTENSION
     Dosage: 5 MG
     Route: 048
     Dates: start: 20030924
  7. MOBIC [Concomitant]
     Indication: DRUG USE FOR UNKNOWN INDICATION
     Dosage: 10 MG
     Route: 048
     Dates: start: 20060104
  8. PENTCILLIN [Concomitant]
     Indication: DRUG USE FOR UNKNOWN INDICATION
     Dosage: 4 G
     Route: 048
  9. POTACOL R [Concomitant]
     Indication: DRUG USE FOR UNKNOWN INDICATION
     Dosage: 500 ML
     Route: 048
  10. ASPIRIN [Concomitant]
     Indication: CEREBRAL INFARCTION
     Dosage: 100 MG
     Route: 048
     Dates: end: 20060202

REACTIONS (6)
  - ABASIA [None]
  - AGGRESSION [None]
  - DELIRIUM [None]
  - FALL [None]
  - FEMORAL NECK FRACTURE [None]
  - RESTLESSNESS [None]
